FAERS Safety Report 6405367-0 (Version None)
Quarter: 2009Q4

REPORT INFORMATION
  Report Type: 
  Country: None (occurrence: None)
  Receive Date: 20091016
  Receipt Date: 20091016
  Transmission Date: 20100525
  Serious: No
  Sender: FDA-Public Use
  Company Number: None

PATIENT
  Sex: Female
  Weight: 76.2043 kg

DRUGS (1)
  1. MACROBID [Suspect]
     Indication: URINARY TRACT INFECTION
     Dosage: 1 CAPSULE 2X DAILY
     Dates: start: 20090916, end: 20090917

REACTIONS (3)
  - EYE DISORDER [None]
  - EYE MOVEMENT DISORDER [None]
  - STRABISMUS [None]
